FAERS Safety Report 8032065-2 (Version None)
Quarter: 2012Q1

REPORT INFORMATION
  Report Type: 
  Country: None (occurrence: None)
  Receive Date: 20120109
  Receipt Date: 20110127
  Transmission Date: 20120608
  Serious: No
  Sender: FDA-Public Use
  Company Number: US-ABBOTT-11P-163-0701488-00

PATIENT
  Age: 63 Year
  Sex: Female

DRUGS (15)
  1. HYDROCODONE BITARTRATE AND ACETAMINOPHEN [Suspect]
     Indication: PRODUCT USED FOR UNKNOWN INDICATION
  2. CLOBETASOL 0.05% [Concomitant]
     Indication: PSORIASIS
     Dosage: 1 APPLICATION TO AFFECTED AREA BID
  3. PROZAC [Concomitant]
     Indication: ANXIETY
  4. MUPRIROCIN [Concomitant]
     Indication: PRURITUS
  5. VITAMIN B-12 [Concomitant]
     Indication: BLOOD IRON DECREASED
  6. HYDROXIZINE [Concomitant]
     Indication: PRURITUS
     Dosage: 25/50MG
  7. MUPRIROCIN [Concomitant]
     Indication: SCRATCH
     Route: 061
  8. ALPRAZOLAM [Concomitant]
     Indication: ANXIETY
  9. TASARAC [Concomitant]
     Indication: PSORIASIS
     Dosage: A  APPLY GEL TO AFFECTED AREAS AT BEDTIME
     Route: 061
  10. TRILIPIX [Concomitant]
     Indication: BLOOD CHOLESTEROL INCREASED
     Dosage: D.R. 1 TAB AR AT BEDTIME
  11. VITAMIN D [Concomitant]
     Indication: BLOOD IRON DECREASED
  12. ACTOPLUS MET [Concomitant]
     Indication: TYPE 2 DIABETES MELLITUS
     Dosage: 15/500MG 1 TAB BID
  13. TRIAMCINOLONE ACETONIDE [Concomitant]
     Indication: PSORIASIS
     Dosage: AFFECTED AREAS BID
  14. LUNESTA [Concomitant]
     Indication: INSOMNIA
     Dosage: AT BEDTIME
  15. FORTEO [Concomitant]
     Indication: OSTEOPOROSIS
     Dosage: 60MCG/2.4ML DAILY
     Route: 058

REACTIONS (1)
  - VOMITING [None]
